FAERS Safety Report 16266731 (Version 3)
Quarter: 2019Q2

REPORT INFORMATION
  Report Type: Spontaneous
  Country: BR (occurrence: BR)
  Receive Date: 20190502
  Receipt Date: 20190517
  Transmission Date: 20190711
  Serious: Yes (Other)
  Sender: FDA-Public Use
  Company Number: BR-PFIZER INC-2019144636

PATIENT
  Age: 70 Year
  Sex: Female

DRUGS (4)
  1. LORAX [LORAZEPAM] [Suspect]
     Active Substance: LORAZEPAM
     Indication: DEPRESSION
     Dosage: 2 MG, DAILY (1 TABLET DAILY AT NIGHT)
     Dates: start: 2004
  2. LORAX [LORAZEPAM] [Suspect]
     Active Substance: LORAZEPAM
     Indication: SLEEP DISORDER
     Dosage: 2 MG, DAILY (2 TABLETS AT NIGHT)
     Dates: start: 2009, end: 201903
  3. SELOZOK [Concomitant]
     Active Substance: METOPROLOL SUCCINATE
     Indication: HYPERTENSION
     Dosage: UNK
  4. LORAX [LORAZEPAM] [Suspect]
     Active Substance: LORAZEPAM
     Dosage: 1 TABLET OF 1MG

REACTIONS (7)
  - Malaise [Recovered/Resolved]
  - Gastric disorder [Recovered/Resolved]
  - Pharyngeal disorder [Recovered/Resolved]
  - Feeling abnormal [Recovered/Resolved]
  - Product use issue [Unknown]
  - Intentional product misuse [Unknown]
  - Gastrointestinal disorder [Recovered/Resolved]
